FAERS Safety Report 8460134-1 (Version None)
Quarter: 2012Q2

REPORT INFORMATION
  Report Type: 
  Country: None (occurrence: None)
  Receive Date: 20120323
  Receipt Date: 20110909
  Transmission Date: 20120825
  Serious: Yes (Other)
  Sender: FDA-Public Use
  Company Number: 163-21880-11091317

PATIENT
  Age: 67 Year
  Sex: Male
  Weight: 81.1031 kg

DRUGS (9)
  1. REVLIMID [Suspect]
     Indication: MULTIPLE MYELOMA
     Dosage: 25, 1 IN 1 D, PO, 15 MG, QDAY X21 DAYS, PO
     Route: 048
     Dates: start: 20110705
  2. REVLIMID [Suspect]
     Indication: MULTIPLE MYELOMA
     Dosage: 25, 1 IN 1 D, PO, 15 MG, QDAY X21 DAYS, PO
     Route: 048
     Dates: start: 20110901
  3. ASPIRIN [Concomitant]
  4. DEXAMETHASONE [Concomitant]
  5. MS CONTIN [Concomitant]
  6. MIRALAX [Concomitant]
  7. VALIUM [Concomitant]
  8. ZANTAC [Concomitant]
  9. MORPHINE [Concomitant]

REACTIONS (2)
  - PANCYTOPENIA [None]
  - OEDEMA PERIPHERAL [None]
